FAERS Safety Report 13783294 (Version 5)
Quarter: 2017Q3

REPORT INFORMATION
  Report Type: Report from Study
  Country: CA (occurrence: CA)
  Receive Date: 20170724
  Receipt Date: 20170811
  Transmission Date: 20171127
  Serious: Yes (Congenital Anomaly, Other)
  Sender: FDA-Public Use
  Company Number: CA-PFIZER INC-HQWYE100616SEP04

PATIENT
  Sex: Female

DRUGS (3)
  1. PROPRANOLOL [Concomitant]
     Active Substance: PROPRANOLOL HYDROCHLORIDE
     Dosage: THROUGHOUT
     Route: 064
  2. QUINIDINE [Concomitant]
     Active Substance: QUINIDINE
     Dosage: TO 3 WK
     Route: 064
  3. CORDARONE [Suspect]
     Active Substance: AMIODARONE HYDROCHLORIDE
     Indication: VENTRICULAR TACHYCARDIA
     Dosage: 200MG BID 4 DAYS/WK
     Route: 064

REACTIONS (3)
  - Congenital nystagmus [Unknown]
  - Cognitive disorder [Unknown]
  - Maternal exposure during pregnancy [Recovered/Resolved]
